FAERS Safety Report 5515430-4 (Version None)
Quarter: 2007Q4

REPORT INFORMATION
  Report Type: 
  Country: None (occurrence: None)
  Receive Date: 20071113
  Receipt Date: 20070319
  Transmission Date: 20080405
  Serious: No
  Sender: FDA-Public Use
  Company Number: A0639558A

PATIENT
  Age: 72 Year
  Sex: Male

DRUGS (2)
  1. COREG [Suspect]
     Dosage: 6.25MG THREE TIMES PER DAY
     Route: 048
  2. AVALIDE [Concomitant]

REACTIONS (2)
  - DIZZINESS [None]
  - HYPOTENSION [None]
